FAERS Safety Report 4684287-6 (Version None)
Quarter: 2005Q2

REPORT INFORMATION
  Report Type: 
  Country: None (occurrence: None)
  Receive Date: 20050531
  Receipt Date: 20041130
  Transmission Date: 20051028
  Serious: Yes (Other)
  Sender: FDA-Public Use
  Company Number: USA040978975

PATIENT
  Age: 45 Year
  Sex: Male
  Weight: 118 kg

DRUGS (22)
  1. ZYPREXA [Suspect]
     Indication: ABNORMAL BEHAVIOUR
     Dosage: 30 MG DAY
     Dates: start: 19990101
  2. ZYPREXA [Suspect]
     Indication: EXCITABILITY
     Dosage: 30 MG DAY
     Dates: start: 19990101
  3. ZYPREXA [Suspect]
     Indication: HOSTILITY
     Dosage: 30 MG DAY
     Dates: start: 19990101
  4. HALDOL (HALOPERIDOL DECANOATE) [Concomitant]
  5. SEROQUEL [Concomitant]
  6. TRAZODONE [Concomitant]
  7. DIAZEPAM [Concomitant]
  8. LEXAPRO [Concomitant]
  9. NAPROXEN SODIUM [Concomitant]
  10. SINGULAIR (MONTELUKAST) [Concomitant]
  11. ADVAIR DISKUS 100/50 [Concomitant]
  12. COMBIVENT [Concomitant]
  13. LIPITOR [Concomitant]
  14. HYDROCHLOROTHIAZIDE [Concomitant]
  15. BACLOFEN [Concomitant]
  16. TRICOR [Concomitant]
  17. AMITRIPTYLINE [Concomitant]
  18. AVANDIA [Concomitant]
  19. GLUCOTROL [Concomitant]
  20. GLUCOPHAGE [Concomitant]
  21. ABILIFY [Concomitant]
  22. DULOXETINE [Concomitant]

REACTIONS (9)
  - ANOREXIA [None]
  - ANXIETY [None]
  - BLOOD GLUCOSE INCREASED [None]
  - HALLUCINATION, AUDITORY [None]
  - MOOD SWINGS [None]
  - PRESCRIBED OVERDOSE [None]
  - PSYCHOTIC DISORDER [None]
  - WEIGHT DECREASED [None]
  - WEIGHT INCREASED [None]
